FAERS Safety Report 9940453 (Version 2)
Quarter: 2014Q1

REPORT INFORMATION
  Report Type: Spontaneous
  Country: JP (occurrence: JP)
  Receive Date: 20140303
  Receipt Date: 20140328
  Transmission Date: 20141002
  Serious: Yes (Death, Other)
  Sender: FDA-Public Use
  Company Number: JP-MPIJNJ-2014JNJ000481

PATIENT
  Sex: 0

DRUGS (8)
  1. VELCADE [Suspect]
     Indication: PLASMA CELL MYELOMA
     Dosage: 2 MG, CYCLIC
     Route: 058
     Dates: start: 20140114, end: 20140128
  2. MELPHALAN [Concomitant]
     Indication: PLASMA CELL MYELOMA
     Dosage: 8 MG, QD
     Route: 048
     Dates: start: 20140114, end: 20140117
  3. PREDNISOLONE [Concomitant]
     Indication: PLASMA CELL MYELOMA
     Dosage: 60 MG, QD
     Route: 048
     Dates: start: 20140114, end: 20140117
  4. ELCATONIN [Concomitant]
     Dosage: 40 DF, QD
     Route: 041
     Dates: start: 20140114, end: 20140114
  5. TRAMAL [Concomitant]
     Dosage: 100 MG, QD
     Route: 048
     Dates: start: 20131226, end: 20140131
  6. TAKEPRON [Concomitant]
     Dosage: 15 MG, QD
     Route: 048
     Dates: start: 20140114, end: 20140131
  7. ACICLOVIR [Concomitant]
     Dosage: 200 MG, QD
     Route: 048
     Dates: start: 20140114, end: 20140131
  8. DAIOKANZOTO [Concomitant]
     Dosage: 2.5 G, QD
     Route: 048
     Dates: end: 20140131

REACTIONS (1)
  - Cardiac failure acute [Fatal]
